FAERS Safety Report 24746020 (Version 1)
Quarter: 2024Q4

REPORT INFORMATION
  Report Type: Spontaneous
  Country: US (occurrence: US)
  Receive Date: 20241218
  Receipt Date: 20241218
  Transmission Date: 20250115
  Serious: Yes (Other)
  Sender: ABBVIE
  Company Number: US-ABBVIE-6040100

PATIENT
  Age: 95 Year
  Sex: Female

DRUGS (3)
  1. CARBOXYMETHYLCELLULOSE SODIUM\GLYCERIN [Suspect]
     Active Substance: CARBOXYMETHYLCELLULOSE SODIUM\GLYCERIN
     Indication: Ocular hyperaemia
     Route: 047
  2. REFRESH DIGITAL [Suspect]
     Active Substance: CARBOXYMETHYLCELLULOSE SODIUM\GLYCERIN\POLYSORBATE 80
     Indication: Product used for unknown indication
     Route: 047
  3. REFRESH RELIEVA [Suspect]
     Active Substance: CARBOXYMETHYLCELLULOSE SODIUM\GLYCERIN
     Indication: Ocular hyperaemia
     Dosage: PRESERVATIVE FREE
     Route: 047

REACTIONS (7)
  - Cataract [Unknown]
  - Eye discharge [Unknown]
  - Product storage error [Unknown]
  - Liquid product physical issue [Unknown]
  - Dandruff [Unknown]
  - Off label use [Unknown]
  - Skin papilloma [Unknown]
